FAERS Safety Report 6928335-9 (Version None)
Quarter: 2010Q3

REPORT INFORMATION
  Report Type: 
  Country: None (occurrence: None)
  Receive Date: 20100810
  Receipt Date: 20100802
  Transmission Date: 20110219
  Serious: Yes (Other)
  Sender: FDA-Public Use
  Company Number: 2010SP032259

PATIENT
  Age: 31 Year
  Sex: Female

DRUGS (3)
  1. SAPHRIS [Suspect]
     Indication: BIPOLAR DISORDER
     Dosage: 5 MG; PO
     Route: 048
     Dates: start: 20100521, end: 20100523
  2. SAPHRIS [Suspect]
     Indication: MANIA
     Dosage: 5 MG; PO
     Route: 048
     Dates: start: 20100521, end: 20100523
  3. CYMBALTA [Concomitant]

REACTIONS (4)
  - AGITATION [None]
  - DYSPHONIA [None]
  - DYSPNOEA [None]
  - THROAT TIGHTNESS [None]
